FAERS Safety Report 8269009-4 (Version None)
Quarter: 2012Q1

REPORT INFORMATION
  Report Type: 
  Country: None (occurrence: None)
  Receive Date: 20120327
  Receipt Date: 20090730
  Transmission Date: 20120608
  Serious: Yes (Other)
  Sender: FDA-Public Use
  Company Number: PHEH2009US08511

PATIENT
  Age: 68 Year
  Sex: Male

DRUGS (6)
  1. METFORMIN HCL [Concomitant]
  2. ALLOPURINOL [Concomitant]
  3. DIOVAN [Concomitant]
  4. GLEEVEC [Suspect]
     Indication: LEUKAEMIA MONOCYTIC
     Dosage: 400 MG, QD, ORAL
     Route: 048
     Dates: start: 20080101
  5. IRON (IRON) [Concomitant]
  6. CRESTOR [Concomitant]

REACTIONS (1)
  - BLOOD SODIUM DECREASED [None]
